FAERS Safety Report 4393845-8 (Version None)
Quarter: 2004Q3

REPORT INFORMATION
  Report Type: 
  Country: None (occurrence: None)
  Receive Date: 20040709
  Receipt Date: 20040414
  Transmission Date: 20050211
  Serious: Yes (Other)
  Sender: FDA-Public Use
  Company Number: US-BRISTOL-MYERS SQUIBB COMPANY-12560181

PATIENT
  Age: 13 Year
  Sex: Male

DRUGS (3)
  1. ABILIFY [Suspect]
     Indication: MOOD SWINGS
     Dosage: RX WRITTEN 08-JUL-04 - 10 MG QD
     Route: 048
     Dates: end: 20030710
  2. ADDERALL 20 [Concomitant]
     Dates: end: 20030708
  3. EFFEXOR XR [Concomitant]
     Dosage: TAPERED TO D/C
     Dates: end: 20030708

REACTIONS (1)
  - ANAPHYLACTIC REACTION [None]
